FAERS Safety Report 7903473-2 (Version None)
Quarter: 2011Q4

REPORT INFORMATION
  Report Type: 
  Country: None (occurrence: None)
  Receive Date: 20111107
  Receipt Date: 20111028
  Transmission Date: 20120403
  Serious: Yes (Life-Threatening, Hospitalization, Other)
  Sender: FDA-Public Use
  Company Number: AUR-APL-2011-05701

PATIENT
  Age: 6 Year
  Sex: Male
  Weight: 23.3 kg

DRUGS (7)
  1. MELOXICAM [Suspect]
     Indication: JUVENILE ARTHRITIS
     Dosage: 2.25 MG (2.25 MG,1 IN 1 D),ORAL
     Route: 048
     Dates: start: 20100209, end: 20100317
  2. ZANTAC [Concomitant]
  3. CELECOXIB [Suspect]
     Indication: JUVENILE ARTHRITIS
  4. MULTIVITAMIN [Concomitant]
  5. PEPTO-BISMOL (BISMUTH SUBSALICYLATE) [Concomitant]
  6. METHOTREXATE [Concomitant]
  7. FOLIC ACID [Concomitant]

REACTIONS (5)
  - FEBRILE NEUTROPENIA [None]
  - WHITE BLOOD CELL COUNT DECREASED [None]
  - RASH [None]
  - MENINGITIS VIRAL [None]
  - ROCKY MOUNTAIN SPOTTED FEVER [None]
